FAERS Safety Report 9968276 (Version 1)
Quarter: 2014Q1

REPORT INFORMATION
  Report Type: Report from Study
  Country: US (occurrence: US)
  Receive Date: 20140306
  Receipt Date: 20140306
  Transmission Date: 20141002
  Serious: No
  Sender: FDA-Public Use
  Company Number: US-ABBVIE-13P-163-1146750-00

PATIENT
  Age: 30 Year
  Sex: Female

DRUGS (8)
  1. HUMIRA [Suspect]
     Indication: PSORIATIC ARTHROPATHY
     Dates: start: 201107, end: 201205
  2. HUMIRA [Suspect]
     Indication: PSORIASIS
  3. HUMIRA [Suspect]
     Indication: ANKYLOSING SPONDYLITIS
  4. LORTAB [Concomitant]
     Indication: PAIN
  5. TIZANIDINE [Concomitant]
     Indication: PRODUCT USED FOR UNKNOWN INDICATION
  6. MORBIC [Concomitant]
     Indication: PSORIATIC ARTHROPATHY
  7. MORBIC [Concomitant]
     Indication: ANKYLOSING SPONDYLITIS
  8. ZOFRAN [Concomitant]
     Indication: NAUSEA

REACTIONS (5)
  - Therapy cessation [Recovering/Resolving]
  - Pain [Recovering/Resolving]
  - Device malfunction [Unknown]
  - Incorrect dose administered [Unknown]
  - Injection site bruising [Unknown]
